FAERS Safety Report 15276643 (Version 1)
Quarter: 2018Q3

REPORT INFORMATION
  Report Type: Spontaneous
  Country: DE (occurrence: DE)
  Receive Date: 20180814
  Receipt Date: 20180814
  Transmission Date: 20181010
  Serious: No
  Sender: FDA-Public Use
  Company Number: DE-B. BRAUN MEDICAL INC.-2053705

PATIENT
  Age: 83 Year
  Sex: Male

DRUGS (6)
  1. ZACPAC [Suspect]
     Active Substance: AMOXICILLIN\CLARITHROMYCIN\PANTOPRAZOLE
     Route: 065
     Dates: start: 20180202
  2. AMLODIPINE [Concomitant]
     Active Substance: AMLODIPINE BESYLATE
  3. TORASEMIDE [Concomitant]
     Active Substance: TORSEMIDE
  4. HEPARIN SODIUM IN DEXTROSE [Suspect]
     Active Substance: HEPARIN SODIUM
     Indication: PRODUCT USED FOR UNKNOWN INDICATION
     Route: 065
  5. LEVOTHYROXINE. [Concomitant]
     Active Substance: LEVOTHYROXINE
  6. MARCOUMAR [Concomitant]
     Active Substance: PHENPROCOUMON

REACTIONS (2)
  - Aspartate aminotransferase increased [Unknown]
  - Alanine aminotransferase increased [Unknown]

NARRATIVE: CASE EVENT DATE: 20180202
